FAERS Safety Report 7832771-6 (Version None)
Quarter: 2011Q4

REPORT INFORMATION
  Report Type: 
  Country: None (occurrence: None)
  Receive Date: 20111024
  Receipt Date: 20111013
  Transmission Date: 20120403
  Serious: No
  Sender: FDA-Public Use
  Company Number: US-BIOGENIDEC-2011BI039726

PATIENT
  Sex: Male

DRUGS (3)
  1. TYSABRI [Suspect]
     Indication: MULTIPLE SCLEROSIS
     Route: 042
     Dates: start: 20110721
  2. VICODIN [Concomitant]
     Indication: BACK PAIN
  3. COUMADIN [Concomitant]
     Indication: PULMONARY EMBOLISM

REACTIONS (2)
  - MIGRAINE [None]
  - BACK PAIN [None]
